FAERS Safety Report 9718245 (Version 1)
Quarter: 2013Q4

REPORT INFORMATION
  Report Type: Spontaneous
  Country: US (occurrence: US)
  Receive Date: 20131125
  Receipt Date: 20131125
  Transmission Date: 20140711
  Serious: No
  Sender: FDA-Public Use
  Company Number: US-VIVUS-2013V1000108

PATIENT
  Age: 59 Year
  Sex: Female
  Weight: 77.18 kg

DRUGS (7)
  1. QSYMIA 7.5MG/46MG [Suspect]
     Indication: WEIGHT DECREASED
     Route: 048
     Dates: start: 2012, end: 20130214
  2. QSYMIA 3.75MG/23MG [Suspect]
     Indication: WEIGHT DECREASED
     Route: 048
     Dates: start: 201211, end: 2012
  3. ZOLOFT [Concomitant]
     Route: 048
     Dates: start: 201204
  4. PREMARIN [Concomitant]
     Route: 048
     Dates: start: 1993
  5. TOPROL [Concomitant]
     Route: 048
     Dates: start: 201207
  6. LOSARTAN [Concomitant]
     Route: 048
     Dates: start: 201207
  7. ZYRTEC [Concomitant]
     Route: 048
     Dates: start: 201202

REACTIONS (5)
  - Headache [Not Recovered/Not Resolved]
  - Emotional disorder [Not Recovered/Not Resolved]
  - Anxiety [Not Recovered/Not Resolved]
  - Nausea [Not Recovered/Not Resolved]
  - Drug dispensing error [Not Recovered/Not Resolved]
